FAERS Safety Report 7423218-2 (Version None)
Quarter: 2011Q2

REPORT INFORMATION
  Report Type: 
  Country: None (occurrence: None)
  Receive Date: 20110419
  Receipt Date: 20110411
  Transmission Date: 20111010
  Serious: Yes (Death)
  Sender: FDA-Public Use
  Company Number: JP-PFIZER INC-2011079663

PATIENT
  Age: 76 Year
  Sex: Male
  Weight: 62.8 kg

DRUGS (11)
  1. SILDENAFIL CITRATE [Suspect]
     Indication: PULMONARY ARTERIAL HYPERTENSION
     Dosage: 20 MG, 1X/DAY
     Dates: start: 20100915
  2. LIPITOR [Concomitant]
     Dosage: UNK
     Route: 048
  3. LASIX [Concomitant]
     Dosage: UNK
     Route: 048
  4. ASPIRIN [Concomitant]
     Dosage: UNK
     Route: 048
  5. PARIET [Concomitant]
     Dosage: UNK
     Route: 048
  6. ARTIST [Concomitant]
     Dosage: UNK
     Route: 048
  7. ALDACTONE [Concomitant]
     Dosage: UNK
     Route: 048
  8. SILDENAFIL CITRATE [Suspect]
     Dosage: 60 MG/DAY
     Dates: start: 20100916
  9. PLAVIX [Concomitant]
     Dosage: UNK
     Route: 048
  10. ALLELOCK [Concomitant]
     Dosage: UNK
     Route: 048
  11. DIGOXIN [Concomitant]
     Dosage: UNK
     Route: 048
     Dates: start: 20100929

REACTIONS (4)
  - BLOOD PRESSURE DECREASED [None]
  - HAEMOGLOBIN DECREASED [None]
  - GAMMA-GLUTAMYLTRANSFERASE INCREASED [None]
  - DEATH [None]
